FAERS Safety Report 17370164 (Version 3)
Quarter: 2020Q4

REPORT INFORMATION
  Report Type: Spontaneous
  Country: US (occurrence: US)
  Receive Date: 20200205
  Receipt Date: 20201224
  Transmission Date: 20210113
  Serious: Yes (Death, Hospitalization, Other)
  Sender: FDA-Public Use
  Company Number: US-SA-2020SA026369

PATIENT

DRUGS (2)
  1. AUBAGIO [Suspect]
     Active Substance: TERIFLUNOMIDE
     Indication: MULTIPLE SCLEROSIS
     Dosage: 14 MG, QD
     Route: 048
     Dates: start: 2014
  2. LEVETIRACETAM. [Concomitant]
     Active Substance: LEVETIRACETAM

REACTIONS (12)
  - Oxygen saturation decreased [Fatal]
  - Decreased interest [Unknown]
  - Spinal disorder [Unknown]
  - COVID-19 [Fatal]
  - Fatigue [Fatal]
  - Secondary progressive multiple sclerosis [Unknown]
  - SARS-CoV-2 test positive [Fatal]
  - Intervertebral disc protrusion [Unknown]
  - Fatigue [Unknown]
  - Cytokine storm [Fatal]
  - Seizure [Unknown]
  - Tooth disorder [Unknown]

NARRATIVE: CASE EVENT DATE: 201812
